FAERS Safety Report 24794043 (Version 1)
Quarter: 2024Q4

REPORT INFORMATION
  Report Type: Spontaneous
  Country: US (occurrence: US)
  Receive Date: 20241231
  Receipt Date: 20241231
  Transmission Date: 20250115
  Serious: No
  Sender: BAYER HEALTHCARE PHARMACEUTICALS INC.
  Company Number: US-BAYER-2024A182217

PATIENT
  Age: 9 Year
  Sex: Male

DRUGS (2)
  1. KOVALTRY [Suspect]
     Active Substance: ANTIHEMOPHILIC FACTOR, HUMAN RECOMBINANT
     Dosage: KOVALTRY 542 UNITS/809 UNITS-1360 UNITS
  2. KOVALTRY [Suspect]
     Active Substance: ANTIHEMOPHILIC FACTOR, HUMAN RECOMBINANT
     Dosage: HAD TO BE INFUSED WITH FACTOR THE FOLLOWING 2 DAYS

REACTIONS (2)
  - Limb injury [None]
  - Peripheral swelling [None]

NARRATIVE: CASE EVENT DATE: 20241220
